FAERS Safety Report 9717479 (Version 1)
Quarter: 2013Q4

REPORT INFORMATION
  Report Type: Spontaneous
  Country: US (occurrence: US)
  Receive Date: 20131127
  Receipt Date: 20131127
  Transmission Date: 20140711
  Serious: No
  Sender: FDA-Public Use
  Company Number: US-GILEAD-2009-0019831

PATIENT
  Age: 61 Year
  Sex: Female

DRUGS (11)
  1. LETAIRIS [Suspect]
     Indication: PULMONARY ARTERIAL HYPERTENSION
     Route: 048
     Dates: start: 20080613
  2. COLCHICINE [Concomitant]
  3. METOPROLOL [Concomitant]
  4. FUROSEMIDE [Concomitant]
  5. PROCARDIA [Concomitant]
  6. SINGULAIR [Concomitant]
  7. LEXAPRO [Concomitant]
  8. ATIVAN [Concomitant]
  9. PREVACID [Concomitant]
  10. CORTICOSTEROIDS [Concomitant]
  11. MULTIVITAMINS [Concomitant]

REACTIONS (1)
  - Alopecia [Not Recovered/Not Resolved]
